FAERS Safety Report 5682151-7 (Version None)
Quarter: 2008Q1

REPORT INFORMATION
  Report Type: 
  Country: None (occurrence: None)
  Receive Date: 20080327
  Receipt Date: 20080317
  Transmission Date: 20080703
  Serious: Yes (Other)
  Sender: FDA-Public Use
  Company Number: GB-RANBAXY-2008RR-13124

PATIENT

DRUGS (1)
  1. CO-AMOXICLAV 250/125 MG TABLETS [Suspect]
     Indication: ESCHERICHIA URINARY TRACT INFECTION
     Dosage: 1 DF, TID
     Route: 048
     Dates: start: 20080116

REACTIONS (7)
  - CHROMATURIA [None]
  - FAECES PALE [None]
  - HEPATIC ENZYME INCREASED [None]
  - JAUNDICE CHOLESTATIC [None]
  - MALAISE [None]
  - NAUSEA [None]
  - PRURITUS [None]
